FAERS Safety Report 9803467 (Version 1)
Quarter: 2014Q1

REPORT INFORMATION
  Report Type: Spontaneous
  Country: US (occurrence: None)
  Receive Date: 20140107
  Receipt Date: 20140107
  Transmission Date: 20141002
  Serious: Yes (Other)
  Sender: FDA-Public Use
  Company Number: None

PATIENT
  Age: 73 Year
  Sex: Female
  Weight: 63.23 kg

DRUGS (1)
  1. CISPLATIN [Suspect]

REACTIONS (4)
  - Dizziness [None]
  - Fatigue [None]
  - Hypotension [None]
  - Diarrhoea [None]
